FAERS Safety Report 8850793 (Version 1)
Quarter: 2012Q4

REPORT INFORMATION
  Report Type: 
  Country: US (occurrence: US)
  Receive Date: 20121019
  Receipt Date: 20121019
  Transmission Date: 20130627
  Serious: Yes (Other)
  Sender: FDA-Public Use
  Company Number: US-MERCK-1210USA004527

PATIENT

DRUGS (4)
  1. FOSAMAX [Suspect]
     Dosage: UNK
     Route: 048
  2. FOSAMAX [Suspect]
     Dosage: UNK
     Route: 048
  3. BONIVA [Suspect]
     Dosage: UNK
     Dates: start: 1990, end: 201202
  4. IBANDRONATE SODIUM [Suspect]
     Dosage: UNK
     Dates: start: 1990, end: 201202

REACTIONS (1)
  - Femur fracture [Unknown]
